FAERS Safety Report 9231868 (Version 1)
Quarter: 2013Q2

REPORT INFORMATION
  Report Type: Spontaneous
  Country: US (occurrence: US)
  Receive Date: 20130415
  Receipt Date: 20130415
  Transmission Date: 20140414
  Serious: No
  Sender: FDA-Public Use
  Company Number: US-BAYER-2013-041167

PATIENT
  Age: 44 Year
  Sex: Female
  Weight: 78.46 kg

DRUGS (2)
  1. ONE A DAY WOMEN^S [Suspect]
     Dosage: QD WITH FOOD
     Route: 048
     Dates: start: 20130323, end: 20130324
  2. ALEVE TABLET [Suspect]
     Dosage: TAB
     Route: 048

REACTIONS (3)
  - Fatigue [Recovered/Resolved]
  - Nausea [Recovered/Resolved]
  - Off label use [None]
